FAERS Safety Report 5629365-X (Version None)
Quarter: 2008Q1

REPORT INFORMATION
  Report Type: 
  Country: None (occurrence: None)
  Receive Date: 20080218
  Receipt Date: 20080211
  Transmission Date: 20080703
  Serious: Yes (Hospitalization)
  Sender: FDA-Public Use
  Company Number: US-ELI_LILLY_AND_COMPANY-US200802002216

PATIENT
  Age: 93 Year
  Sex: Male

DRUGS (4)
  1. ZYPREXA [Suspect]
     Indication: NERVOUSNESS
     Dosage: 7.5 MG, UNK
     Dates: start: 20030101
  2. ZYPREXA [Suspect]
     Dosage: 5 MG, UNK
     Dates: start: 20040101, end: 20050101
  3. ZYPREXA [Suspect]
     Dosage: 2.5 MG, UNK
     Dates: start: 20050101
  4. RAZADYNE [Concomitant]

REACTIONS (10)
  - DYSPHAGIA [None]
  - FATIGUE [None]
  - FEELING ABNORMAL [None]
  - GAIT DISTURBANCE [None]
  - INSOMNIA [None]
  - MUSCULOSKELETAL STIFFNESS [None]
  - PNEUMONIA ASPIRATION [None]
  - POSTURE ABNORMAL [None]
  - REPETITIVE SPEECH [None]
  - TREMOR [None]
